FAERS Safety Report 8033648-6 (Version None)
Quarter: 2012Q1

REPORT INFORMATION
  Report Type: 
  Country: None (occurrence: None)
  Receive Date: 20120110
  Receipt Date: 20111230
  Transmission Date: 20120608
  Serious: Yes (Death, Hospitalization)
  Sender: FDA-Public Use
  Company Number: DE-JUTA GMBH-2011-21239

PATIENT
  Age: 78 Year
  Sex: Female

DRUGS (4)
  1. MIRTAZAPINE [Suspect]
     Indication: SUICIDE ATTEMPT
     Dosage: 600 MG
  2. NORVASC [Suspect]
     Indication: SUICIDAL IDEATION
  3. ISOSORBIDE MONONITRATE [Suspect]
     Indication: SUICIDAL IDEATION
     Dosage: 2 GRAMS
  4. BENAZEPRIL HYDROCHLORIDE [Suspect]
     Indication: SUICIDAL IDEATION

REACTIONS (3)
  - VASODILATATION [None]
  - CARDIAC FAILURE [None]
  - INTESTINAL ISCHAEMIA [None]
